FAERS Safety Report 19046567 (Version 1)
Quarter: 2021Q1

REPORT INFORMATION
  Report Type: Spontaneous
  Country: US (occurrence: US)
  Receive Date: 20210322
  Receipt Date: 20210322
  Transmission Date: 20210420
  Serious: No
  Sender: FDA-Public Use
  Company Number: US-SA-2021SA093871

PATIENT
  Sex: Female

DRUGS (3)
  1. SURFACTANT BL [Suspect]
     Active Substance: CALFACTANT
  2. INTERLEUKINS [Suspect]
     Active Substance: INTERLEUKIN NOS
  3. DUPIXENT [Suspect]
     Active Substance: DUPILUMAB
     Indication: ASTHMA

REACTIONS (1)
  - Exposure during pregnancy [Unknown]
